FAERS Safety Report 25851441 (Version 1)
Quarter: 2025Q3

REPORT INFORMATION
  Report Type: Spontaneous
  Country: EU (occurrence: EU)
  Receive Date: 20250926
  Receipt Date: 20250926
  Transmission Date: 20251020
  Serious: Yes (Hospitalization)
  Sender: DR REDDYS
  Company Number: None

PATIENT
  Age: 6 Year
  Sex: Male
  Weight: 23 kg

DRUGS (4)
  1. CYCLOPHOSPHAMIDE [Suspect]
     Active Substance: CYCLOPHOSPHAMIDE
     Indication: Product used for unknown indication
     Route: 042
     Dates: start: 20250902, end: 20250903
  2. ALIZAPRIDE HYDROCHLORIDE [Suspect]
     Active Substance: ALIZAPRIDE HYDROCHLORIDE
     Indication: Prophylaxis of nausea and vomiting
     Dosage: SOLUTION INJECTABLE
     Route: 042
     Dates: start: 20250902, end: 20250903
  3. ONDANSETRON [Suspect]
     Active Substance: ONDANSETRON
     Indication: Prophylaxis of nausea and vomiting
     Dosage: 2 MG/ML, SOLUTION INJECTABLE
     Route: 042
     Dates: start: 20250902, end: 20250903
  4. FLUOXETINE [Suspect]
     Active Substance: FLUOXETINE HYDROCHLORIDE
     Indication: Product used for unknown indication
     Route: 048
     Dates: end: 20250902

REACTIONS (1)
  - Dystonia [Recovered/Resolved]

NARRATIVE: CASE EVENT DATE: 20250903
